FAERS Safety Report 7077154-4 (Version None)
Quarter: 2010Q4

REPORT INFORMATION
  Report Type: 
  Country: None (occurrence: None)
  Receive Date: 20101101
  Receipt Date: 20101025
  Transmission Date: 20110411
  Serious: Yes (Life-Threatening, Hospitalization, Disabling, Other)
  Sender: FDA-Public Use
  Company Number: A0889704A

PATIENT
  Sex: Male

DRUGS (4)
  1. ADVAIR DISKUS 100/50 [Suspect]
     Route: 055
     Dates: start: 20070101
  2. QVAR 40 [Concomitant]
  3. ATROVENT [Concomitant]
  4. ALBUTEROL [Concomitant]

REACTIONS (2)
  - DYSPNOEA [None]
  - RESPIRATORY DISTRESS [None]
